FAERS Safety Report 4352456-0 (Version None)
Quarter: 2004Q2

REPORT INFORMATION
  Report Type: 
  Country: None (occurrence: None)
  Receive Date: 20040409
  Receipt Date: 20040304
  Transmission Date: 20050107
  Serious: No
  Sender: FDA-Public Use
  Company Number: PHEH2004US01902

PATIENT
  Age: 3 Month

DRUGS (1)
  1. ELIDEL [Suspect]
     Indication: DERMATITIS ATOPIC
     Dosage: BID, TOPICAL
     Route: 061

REACTIONS (5)
  - ACCIDENTAL EXPOSURE [None]
  - CRYING [None]
  - EYE PAIN [None]
  - EYE REDNESS [None]
  - LACRIMATION INCREASED [None]
